FAERS Safety Report 14559078 (Version 1)
Quarter: 2018Q1

REPORT INFORMATION
  Report Type: Spontaneous
  Country: US (occurrence: US)
  Receive Date: 20180221
  Receipt Date: 20180221
  Transmission Date: 20180509
  Serious: No
  Sender: FDA-Public Use
  Company Number: US-SAGENT PHARMACEUTICALS-2017SAG000805

PATIENT

DRUGS (1)
  1. PROPOFOL. [Suspect]
     Active Substance: PROPOFOL
     Indication: ANAESTHESIA
     Dosage: UNK
     Route: 042

REACTIONS (1)
  - Drug ineffective [Unknown]
